FAERS Safety Report 6957354 (Version 4)
Quarter: 2014Q3

REPORT INFORMATION
  Report Type: Spontaneous
  Country: DK (occurrence: DK)
  Receive Date: 20090401
  Receipt Date: 20140729
  Transmission Date: 20150326
  Serious: Yes (Hospitalization)
  Sender: FDA-Public Use
  Company Number: DK-RANBAXY-2009RR-22977

PATIENT
  Age: 64 Year
  Sex: Male
  Weight: 80 kg

DRUGS (3)
  1. DICILLIN [Concomitant]
     Active Substance: DICLOXACILLIN SODIUM
     Indication: PRODUCT USED FOR UNKNOWN INDICATION
     Dosage: 500 MG, UNK
     Route: 048
     Dates: start: 20090201
  2. SIMVASTATIN. [Suspect]
     Active Substance: SIMVASTATIN
     Indication: PROPHYLAXIS
     Dosage: 40 MG, UNK
     Route: 065
     Dates: start: 20090201, end: 20090213
  3. ASASANTIN RETARD [Suspect]
     Active Substance: ASPIRIN\DIPYRIDAMOLE
     Indication: THROMBOSIS PROPHYLAXIS
     Dosage: UNK
     Route: 048
     Dates: start: 20090201

REACTIONS (2)
  - Myalgia [Recovered/Resolved]
  - Gouty arthritis [Not Recovered/Not Resolved]

NARRATIVE: CASE EVENT DATE: 20090216
